FAERS Safety Report 12980790 (Version 2)
Quarter: 2016Q4

REPORT INFORMATION
  Report Type: Spontaneous
  Country: JP (occurrence: JP)
  Receive Date: 20161128
  Receipt Date: 20161129
  Transmission Date: 20170207
  Serious: Yes (Other)
  Sender: FDA-Public Use
  Company Number: JP-TEVA-714097ISR

PATIENT
  Age: 69 Year
  Sex: Female

DRUGS (5)
  1. DEXAMETHASONE. [Concomitant]
     Active Substance: DEXAMETHASONE
     Dosage: ADMINISTERED ALONG WITH 125MG/M2 PACLITAXEL
     Route: 048
  2. PACLITAXEL. [Suspect]
     Active Substance: PACLITAXEL
     Indication: BREAST CANCER
     Dosage: ON DAYS 1, 8 AND 15
     Route: 042
  3. FEXOFENADINE [Concomitant]
     Active Substance: FEXOFENADINE\FEXOFENADINE HYDROCHLORIDE
     Dosage: ADMINISTERED ALONG WITH 125MG/M2 PACLITAXEL
     Route: 048
  4. PACLITAXEL. [Suspect]
     Active Substance: PACLITAXEL
     Dosage: RESTARTED AT 125MG/M2
     Route: 042
  5. GRANISETRON [Concomitant]
     Active Substance: GRANISETRON
     Dosage: 1MG (GIVEN ALONG WITH 150MG/M2 PACLITAXEL)
     Route: 065

REACTIONS (3)
  - Cystitis [Recovered/Resolved]
  - Cystitis haemorrhagic [Recovered/Resolved]
  - Rash [Recovered/Resolved]
